FAERS Safety Report 7624942-9 (Version None)
Quarter: 2011Q3

REPORT INFORMATION
  Report Type: 
  Country: None (occurrence: None)
  Receive Date: 20110720
  Receipt Date: 20110715
  Transmission Date: 20111222
  Serious: Yes (Death, Hospitalization, Other)
  Sender: FDA-Public Use
  Company Number: US-AMGEN-USASP2010011806

PATIENT
  Age: 60 Year
  Sex: Male

DRUGS (1)
  1. NPLATE [Suspect]
     Indication: IDIOPATHIC THROMBOCYTOPENIC PURPURA
     Dosage: UNK
     Dates: start: 20101215, end: 20110330

REACTIONS (11)
  - DECREASED APPETITE [None]
  - HYPERKALAEMIA [None]
  - PERITONITIS BACTERIAL [None]
  - JUGULAR VEIN THROMBOSIS [None]
  - EPISTAXIS [None]
  - THROMBOCYTOPENIA [None]
  - RENAL FAILURE ACUTE [None]
  - LEUKOCYTOSIS [None]
  - MENTAL STATUS CHANGES [None]
  - SEPSIS [None]
  - PANCREATIC CARCINOMA METASTATIC [None]
